FAERS Safety Report 7610461-2 (Version None)
Quarter: 2011Q3

REPORT INFORMATION
  Report Type: 
  Country: None (occurrence: None)
  Receive Date: 20110715
  Receipt Date: 20110629
  Transmission Date: 20111222
  Serious: Yes (Hospitalization)
  Sender: FDA-Public Use
  Company Number: JP-BAYER-2011-046968

PATIENT
  Age: 77 Year
  Sex: Male
  Weight: 44 kg

DRUGS (11)
  1. LOCOID [Concomitant]
     Indication: PROPHYLAXIS
     Dosage: UNK
     Route: 061
     Dates: start: 20110328
  2. NEXAVAR [Suspect]
     Indication: HEPATIC NEOPLASM MALIGNANT
     Dosage: 200 MG, BID
     Route: 048
     Dates: start: 20110328, end: 20110331
  3. NEXAVAR [Suspect]
     Dosage: DAILY DOSE 400 MG
     Route: 048
     Dates: start: 20110413, end: 20110417
  4. LOXOPROFEN [Concomitant]
     Indication: PAIN MANAGEMENT
     Dosage: DAILY DOSE 180 MG
     Route: 048
     Dates: start: 20110412
  5. MORPHINE [Concomitant]
     Indication: PAIN MANAGEMENT
     Dosage: DAILY DOSE 5 MG
     Route: 048
     Dates: start: 20110425
  6. LANSOPRAZOLE [Concomitant]
     Indication: PROPHYLAXIS AGAINST GASTROINTESTINAL ULCER
     Dosage: DAILY DOSE 15 MG
     Route: 048
     Dates: start: 20110412
  7. NEXAVAR [Suspect]
     Dosage: DAILY DOSE 800 MG
     Route: 048
     Dates: start: 20110418, end: 20110420
  8. BESOFTEN [Concomitant]
     Indication: PROPHYLAXIS
     Dosage: UNK
     Route: 061
     Dates: start: 20110328
  9. LIVACT [Concomitant]
     Indication: BLOOD ALBUMIN DECREASED
     Dosage: DAILY DOSE 12.45 G
     Route: 048
  10. FUROSEMIDE [Concomitant]
     Indication: ASCITES
     Dosage: DAILY DOSE 40 MG
     Route: 048
  11. PROCHLORPERAZINE [Concomitant]
     Indication: PROPHYLAXIS OF NAUSEA AND VOMITING
     Dosage: DAILY DOSE 5 MG
     Route: 048
     Dates: start: 20110425

REACTIONS (2)
  - BLOOD CREATININE INCREASED [None]
  - HEPATIC FUNCTION ABNORMAL [None]
